FAERS Safety Report 23675642 (Version 2)
Quarter: 2024Q2

REPORT INFORMATION
  Report Type: Report from Study
  Country: BR (occurrence: BR)
  Receive Date: 20240327
  Receipt Date: 20240412
  Transmission Date: 20240716
  Serious: Yes (Hospitalization)
  Sender: FDA-Public Use
  Company Number: BR-JNJFOC-20240362945

PATIENT
  Age: 52 Year
  Sex: Female

DRUGS (3)
  1. INFLIXIMAB [Suspect]
     Active Substance: INFLIXIMAB
     Indication: Crohn^s disease
     Route: 041
     Dates: start: 20240226
  2. INFLIXIMAB [Suspect]
     Active Substance: INFLIXIMAB
     Route: 041
     Dates: start: 20240229
  3. INFLIXIMAB [Suspect]
     Active Substance: INFLIXIMAB
     Indication: Crohn^s disease
     Route: 041

REACTIONS (7)
  - Clostridium difficile infection [Unknown]
  - Abdominal pain [Unknown]
  - Fatigue [Unknown]
  - Off label use [Unknown]
  - Back pain [Unknown]
  - Dyspnoea [Unknown]
  - Asthenia [Unknown]

NARRATIVE: CASE EVENT DATE: 20240229
